FAERS Safety Report 13195996 (Version 2)
Quarter: 2020Q3

REPORT INFORMATION
  Report Type: Report from Study
  Country: JP (occurrence: JP)
  Receive Date: 20170208
  Receipt Date: 20170222
  Transmission Date: 20201104
  Serious: Yes (Hospitalization)
  Sender: FDA-Public Use
  Company Number: JP-ROCHE-1887755

PATIENT
  Age: 13 Year
  Sex: Male
  Weight: 74 kg

DRUGS (2)
  1. ALECTINIB. [Suspect]
     Active Substance: ALECTINIB
     Indication: ANAPLASTIC LARGE-CELL LYMPHOMA
     Route: 048
     Dates: start: 20150531
  2. BAKTAR [Concomitant]
     Active Substance: SULFAMETHOXAZOLE\TRIMETHOPRIM
     Indication: INFECTION PROPHYLAXIS
     Dosage: MONEY, SOIL, AND DAY
     Route: 048
     Dates: start: 201412

REACTIONS (1)
  - Tonsillitis [Recovered/Resolved]

NARRATIVE: CASE EVENT DATE: 20170127
